FAERS Safety Report 10081785 (Version 4)
Quarter: 2014Q3

REPORT INFORMATION
  Report Type: Report from Study
  Country: US (occurrence: US)
  Receive Date: 20140416
  Receipt Date: 20140715
  Transmission Date: 20150326
  Serious: Yes (Death, Hospitalization)
  Sender: FDA-Public Use
  Company Number: US-ACTELION-A-NJ2014-97189

PATIENT
  Age: 70 Year
  Sex: Male

DRUGS (12)
  1. CORDARONE [Concomitant]
     Active Substance: AMIODARONE HYDROCHLORIDE
  2. ATROVENT [Concomitant]
     Active Substance: IPRATROPIUM BROMIDE
  3. METOLAZONE. [Concomitant]
     Active Substance: METOLAZONE
  4. MACITENTAN [Suspect]
     Active Substance: MACITENTAN
     Indication: PULMONARY ARTERIAL HYPERTENSION
     Dosage: 10 MG, QD
     Route: 048
     Dates: start: 20131227, end: 20140601
  5. CEFADROXIL. [Concomitant]
     Active Substance: CEFADROXIL
  6. DIGOXIN. [Concomitant]
     Active Substance: DIGOXIN
  7. PRAVASTATIN [Concomitant]
     Active Substance: PRAVASTATIN\PRAVASTATIN SODIUM
  8. COZAAR [Concomitant]
     Active Substance: LOSARTAN POTASSIUM
  9. CARDIZEM [Concomitant]
     Active Substance: DILTIAZEM HYDROCHLORIDE
  10. FUROSEMIDE. [Concomitant]
     Active Substance: FUROSEMIDE
  11. RAPAMUNE [Concomitant]
     Active Substance: SIROLIMUS
  12. WARFARIN [Concomitant]
     Active Substance: WARFARIN

REACTIONS (9)
  - Pulmonary hypertension [Fatal]
  - Acute respiratory failure [Fatal]
  - Rectal haemorrhage [Not Recovered/Not Resolved]
  - Fluid retention [Not Recovered/Not Resolved]
  - Asthenia [Not Recovered/Not Resolved]
  - Renal failure [Fatal]
  - Transfusion [Not Recovered/Not Resolved]
  - Cardiac failure congestive [Fatal]
  - Paracentesis [Not Recovered/Not Resolved]

NARRATIVE: CASE EVENT DATE: 20140325
